FAERS Safety Report 17147664 (Version 1)
Quarter: 2019Q4

REPORT INFORMATION
  Report Type: Report from Study
  Country: CN (occurrence: CN)
  Receive Date: 20191212
  Receipt Date: 20191212
  Transmission Date: 20200122
  Serious: Yes (Death)
  Sender: FDA-Public Use
  Company Number: CN-ROCHE-2485884

PATIENT
  Sex: Male
  Weight: 50 kg

DRUGS (7)
  1. GLYCYRRHIZIN [GLYCYRRHIZA GLABRA] [Concomitant]
     Indication: ASPARTATE AMINOTRANSFERASE INCREASED
  2. GLYCYRRHIZIN [GLYCYRRHIZA GLABRA] [Concomitant]
     Indication: BLOOD BILIRUBIN INCREASED
  3. BEVACIZUMAB. [Suspect]
     Active Substance: BEVACIZUMAB
     Indication: COLORECTAL CANCER METASTATIC
     Dosage: THE PATIENT RECEIVED THE MOST RECENT DOSE OF BEVACIZUMAB ON 14-APR-2018 AT A DOSE OF 255 MG ONCE IN
     Route: 042
     Dates: start: 20180414, end: 20180414
  4. FLUOROURACIL. [Suspect]
     Active Substance: FLUOROURACIL
     Indication: COLORECTAL CANCER METASTATIC
     Dosage: THE PATIENT RECEIVED THE MOST RECENT DOSE OF FLUOROURACIL, PRIOR TO THE EVENT, ON 16-APR-2018, AT A
     Route: 042
     Dates: start: 20180414
  5. IRINOTECAN [Suspect]
     Active Substance: IRINOTECAN
     Indication: COLORECTAL CANCER METASTATIC
     Route: 065
     Dates: start: 20180414
  6. NAPABUCASIN [Suspect]
     Active Substance: NAPABUCASIN
     Indication: COLORECTAL CANCER METASTATIC
     Dosage: THE PATIENT?RECEIVED THE MOST RECENT DOSE OF STUDY DRUG BBI-608, PRIOR TO THE EVENT, ON 09-MAY-2018
     Route: 048
     Dates: start: 20180410, end: 20180509
  7. LEUCOVORIN [FOLINIC ACID] [Suspect]
     Active Substance: LEUCOVORIN
     Indication: COLORECTAL CANCER METASTATIC
     Route: 065
     Dates: start: 20180414

REACTIONS (1)
  - Death [Fatal]
